FAERS Safety Report 6407841-X (Version None)
Quarter: 2009Q4

REPORT INFORMATION
  Report Type: 
  Country: None (occurrence: None)
  Receive Date: 20091015
  Receipt Date: 20091004
  Transmission Date: 20100525
  Serious: Yes (Death, Hospitalization)
  Sender: FDA-Public Use
  Company Number: 09-090

PATIENT
  Age: 34 Year
  Sex: Male

DRUGS (3)
  1. CEFAZOLIN [Suspect]
     Indication: CELLULITIS
     Dosage: INTRAVENOUS
     Route: 042
  2. CEFAZOLIN [Suspect]
     Indication: PROPHYLAXIS
     Dosage: INTRAVENOUS
     Route: 042
  3. CEFAZOLIN [Suspect]
     Indication: UPPER RESPIRATORY TRACT INFECTION
     Dosage: INTRAVENOUS
     Route: 042

REACTIONS (14)
  - ANAEMIA [None]
  - ANAPHYLACTIC REACTION [None]
  - ARTERIOSCLEROSIS CORONARY ARTERY [None]
  - ARTERIOVENOUS FISTULA [None]
  - BRAIN OEDEMA [None]
  - CARDIOMEGALY [None]
  - CONVULSION [None]
  - HEPATIC STEATOSIS [None]
  - KIDNEY SMALL [None]
  - PULMONARY HAEMORRHAGE [None]
  - PULMONARY OEDEMA [None]
  - RESPIRATORY ARREST [None]
  - SILICOSIS [None]
  - UPPER RESPIRATORY TRACT INFECTION [None]
